FAERS Safety Report 12246389 (Version 1)
Quarter: 2016Q2

REPORT INFORMATION
  Report Type: Spontaneous
  Country: FI (occurrence: FI)
  Receive Date: 20160407
  Receipt Date: 20160407
  Transmission Date: 20160815
  Serious: Yes (Death, Other)
  Sender: FDA-Public Use
  Company Number: FI-JUBILANT CADISTA PHARMACEUTICALS-2016JUB00126

PATIENT
  Age: 62 Year
  Sex: Female

DRUGS (9)
  1. CODEINE [Suspect]
     Active Substance: CODEINE
     Route: 065
  2. DIAZEPAM. [Concomitant]
     Active Substance: DIAZEPAM
  3. LOSARTAN POTASSIUM. [Suspect]
     Active Substance: LOSARTAN POTASSIUM
     Route: 065
  4. MELATONIN [Concomitant]
     Active Substance: MELATONIN
  5. IBUPROFEN. [Concomitant]
     Active Substance: IBUPROFEN
  6. PARACETAMOL [Suspect]
     Active Substance: ACETAMINOPHEN
     Route: 065
  7. METFORMIN [Concomitant]
     Active Substance: METFORMIN HYDROCHLORIDE
  8. ETHANOL [Suspect]
     Active Substance: ALCOHOL
     Route: 065
  9. MORPHINE [Concomitant]
     Active Substance: MORPHINE

REACTIONS (3)
  - Completed suicide [Fatal]
  - Aspiration [Unknown]
  - Intentional overdose [Fatal]
